FAERS Safety Report 8017481-7 (Version None)
Quarter: 2011Q4

REPORT INFORMATION
  Report Type: 
  Country: None (occurrence: None)
  Receive Date: 20111228
  Receipt Date: 20111228
  Transmission Date: 20120403
  Serious: Yes (Life-Threatening, Hospitalization, Disabling, Other)
  Sender: FDA-Public Use
  Company Number: None

PATIENT
  Age: 29 Year
  Sex: Female
  Weight: 63.5036 kg

DRUGS (2)
  1. ANTIPYRINE/BENZ OTIC SOL/ACELLA PHARMACEUTICALS, LLC [Suspect]
     Dates: start: 20101211
  2. 15 ML ANTIPYRINE/BENZ OCTIC SOL/AURALGAN EAR DROPS [Suspect]
     Indication: HYPOACUSIS
     Dosage: 1 TO 2 DROPS 4-6 HRS EAR
     Route: 001
     Dates: start: 20101211

REACTIONS (14)
  - DRUG HYPERSENSITIVITY [None]
  - DIZZINESS [None]
  - LOSS OF CONSCIOUSNESS [None]
  - NERVOUS SYSTEM DISORDER [None]
  - LOCAL SWELLING [None]
  - AURICULAR SWELLING [None]
  - EAR DISCOMFORT [None]
  - NAUSEA [None]
  - MULTIPLE INJURIES [None]
  - SWELLING FACE [None]
  - SKIN DISCOLOURATION [None]
  - HYPOTHERMIA [None]
  - WEIGHT INCREASED [None]
  - AMNESIA [None]
